FAERS Safety Report 6245451-8 (Version None)
Quarter: 2009Q2

REPORT INFORMATION
  Report Type: 
  Country: None (occurrence: None)
  Receive Date: 20090625
  Receipt Date: 20090610
  Transmission Date: 20091009
  Serious: Yes (Hospitalization, Other)
  Sender: FDA-Public Use
  Company Number: CO-MEDIMMUNE-MEDI-0008504

PATIENT
  Sex: Male

DRUGS (1)
  1. SYNAGIS [Suspect]
     Indication: ANTIVIRAL PROPHYLAXIS
     Route: 030
     Dates: end: 20080815

REACTIONS (2)
  - PNEUMOTHORAX [None]
  - RESPIRATORY SYNCYTIAL VIRUS INFECTION [None]
